FAERS Safety Report 25983498 (Version 1)
Quarter: 2025Q4

REPORT INFORMATION
  Report Type: Spontaneous
  Country: EU (occurrence: EU)
  Receive Date: 20251031
  Receipt Date: 20251031
  Transmission Date: 20260118
  Serious: Yes (Other)
  Sender: RANBAXY
  Company Number: EU-AFSSAPS-SE2025000605

PATIENT
  Age: 94 Year
  Sex: Female

DRUGS (1)
  1. VENLAFAXINE [Suspect]
     Active Substance: VENLAFAXINE HYDROCHLORIDE
     Indication: Product supply issue
     Dosage: 1 TABLET/DAY LONG-TERM
     Route: 048
     Dates: end: 202505

REACTIONS (5)
  - Suicidal ideation [Unknown]
  - Withdrawal syndrome [Unknown]
  - Product availability issue [Unknown]
  - Product substitution issue [Unknown]
  - Intentional product misuse [Unknown]

NARRATIVE: CASE EVENT DATE: 20250501
